FAERS Safety Report 13065188 (Version 1)
Quarter: 2016Q4

REPORT INFORMATION
  Report Type: Spontaneous
  Country: GB (occurrence: GB)
  Receive Date: 20161227
  Receipt Date: 20161227
  Transmission Date: 20170207
  Serious: Yes (Hospitalization, Other)
  Sender: FDA-Public Use
  Company Number: PHFR2016GB009955

PATIENT
  Age: 9 Year
  Sex: Female
  Weight: 28 kg

DRUGS (4)
  1. EXJADE [Suspect]
     Active Substance: DEFERASIROX
     Indication: HYPERCHROMIC ANAEMIA
     Dosage: 1000 MG, QD
     Route: 048
     Dates: start: 20101007, end: 20160816
  2. EXJADE [Suspect]
     Active Substance: DEFERASIROX
     Indication: CONGENITAL ANAEMIA
     Dosage: 750 MG, QD
     Route: 048
  3. EXJADE [Suspect]
     Active Substance: DEFERASIROX
     Indication: ANAEMIA
     Dosage: 650/750, QD
     Route: 048
     Dates: start: 20090112
  4. FOLIC ACID. [Concomitant]
     Active Substance: FOLIC ACID
     Indication: PRODUCT USED FOR UNKNOWN INDICATION
     Dosage: 5 MG, QD
     Route: 048
     Dates: start: 20101011

REACTIONS (3)
  - Device related infection [Unknown]
  - Weight decreased [Recovered/Resolved]
  - Pyrexia [Recovered/Resolved]

NARRATIVE: CASE EVENT DATE: 20160525
